FAERS Safety Report 5285300-8 (Version None)
Quarter: 2007Q2

REPORT INFORMATION
  Report Type: 
  Country: None (occurrence: None)
  Receive Date: 20070403
  Receipt Date: 20070322
  Transmission Date: 20071010
  Serious: Yes (Hospitalization, Disabling)
  Sender: FDA-Public Use
  Company Number: GB-PFIZER INC-2007023868

PATIENT
  Age: 54 Year
  Sex: Female
  Weight: 63.5 kg

DRUGS (4)
  1. LYRICA [Suspect]
     Indication: BACK PAIN
     Route: 048
     Dates: start: 20060424, end: 20060505
  2. LYRICA [Suspect]
     Indication: PAIN IN EXTREMITY
  3. DICLOFENAC SODIUM [Concomitant]
  4. NEOTIGASON [Concomitant]
     Dates: start: 19820101

REACTIONS (3)
  - ABASIA [None]
  - ASTHENIA [None]
  - MUSCULAR WEAKNESS [None]
